FAERS Safety Report 17476935 (Version 1)
Quarter: 2020Q1

REPORT INFORMATION
  Report Type: Report from Study
  Country: BR (occurrence: BR)
  Receive Date: 20200228
  Receipt Date: 20200228
  Transmission Date: 20200409
  Serious: Yes (Hospitalization)
  Sender: FDA-Public Use
  Company Number: BR-JNJFOC-20191109477

PATIENT
  Sex: Female
  Weight: 102 kg

DRUGS (3)
  1. STELARA [Suspect]
     Active Substance: USTEKINUMAB
     Dosage: 0, 4 AND EVERY 12 WEEKS
     Route: 058
     Dates: start: 20180719
  2. STELARA [Suspect]
     Active Substance: USTEKINUMAB
     Indication: PSORIASIS
     Dosage: 0, 4 AND EVERY 12 WEEKS
     Route: 058
     Dates: start: 20180621
  3. STELARA [Suspect]
     Active Substance: USTEKINUMAB
     Dosage: 0, 4 AND EVERY 12 WEEKS
     Route: 058
     Dates: start: 201810

REACTIONS (2)
  - Urinary tract infection [Unknown]
  - Hot flush [Not Recovered/Not Resolved]
